FAERS Safety Report 13263165 (Version 1)
Quarter: 2017Q1

REPORT INFORMATION
  Report Type: Spontaneous
  Country: IN (occurrence: IN)
  Receive Date: 20170223
  Receipt Date: 20170223
  Transmission Date: 20170428
  Serious: Yes (Congenital Anomaly, Other)
  Sender: FDA-Public Use
  Company Number: IN-ACCORD-048353

PATIENT
  Sex: Female

DRUGS (2)
  1. LEVETIRACETAM. [Suspect]
     Active Substance: LEVETIRACETAM
     Indication: EPILEPSY
     Dosage: INITIALLY, MOTHER RECEIVED 1000 MG/D AT 5 WK OF GESTATION, THEN INCREASED TO 1250 MG/D AT 32 WK
     Route: 064
  2. CARBAMAZEPINE. [Concomitant]
     Active Substance: CARBAMAZEPINE
     Route: 064

REACTIONS (4)
  - Teratogenicity [Unknown]
  - Dysmorphism [Unknown]
  - Spina bifida [Unknown]
  - Foetal exposure during pregnancy [Unknown]
